FAERS Safety Report 4375486-1 (Version None)
Quarter: 2004Q2

REPORT INFORMATION
  Report Type: 
  Country: None (occurrence: None)
  Receive Date: 20040607
  Receipt Date: 20040525
  Transmission Date: 20050107
  Serious: Yes (Hospitalization)
  Sender: FDA-Public Use
  Company Number: 2004UW11073

PATIENT
  Age: 44 Year
  Sex: Male

DRUGS (9)
  1. SEROQUEL [Suspect]
  2. ALCOHOL [Suspect]
  3. SUSTIVA [Suspect]
  4. REGLAN [Suspect]
  5. PHENERGAN [Suspect]
  6. VIREAD [Suspect]
  7. TRAZODONE HCL [Suspect]
  8. DEPAKOTE [Suspect]
  9. 3TC [Suspect]

REACTIONS (6)
  - ALCOHOLISM [None]
  - DEPENDENCE [None]
  - DEPRESSION [None]
  - MULTIPLE DRUG OVERDOSE [None]
  - MYOCARDIAL INFARCTION [None]
  - SUICIDE ATTEMPT [None]
